FAERS Safety Report 8924601 (Version 1)
Quarter: 2012Q4

REPORT INFORMATION
  Report Type: 
  Country: IL (occurrence: IL)
  Receive Date: 20121126
  Receipt Date: 20121126
  Transmission Date: 20130627
  Serious: Yes (Other)
  Sender: FDA-Public Use
  Company Number: IL-GLAXOSMITHKLINE-B0846763A

PATIENT
  Age: 30 Year
  Sex: Female

DRUGS (4)
  1. BENLYSTA [Suspect]
     Indication: PRODUCT USED FOR UNKNOWN INDICATION
     Route: 042
  2. PLAQUENIL [Concomitant]
  3. IMURAN [Concomitant]
  4. PREDNISON [Concomitant]

REACTIONS (3)
  - Pneumonia [Recovered/Resolved]
  - Pyrexia [Recovered/Resolved]
  - Respiratory disorder [Recovered/Resolved]
